FAERS Safety Report 15081816 (Version 5)
Quarter: 2018Q3

REPORT INFORMATION
  Report Type: Spontaneous
  Country: PR (occurrence: PR)
  Receive Date: 20180628
  Receipt Date: 20180822
  Transmission Date: 20181010
  Serious: No
  Sender: FDA-Public Use
  Company Number: PR-PFIZER INC-2018252249

PATIENT
  Age: 69 Year
  Sex: Female

DRUGS (3)
  1. AROMASIN [Suspect]
     Active Substance: EXEMESTANE
     Indication: BREAST CANCER FEMALE
     Dosage: 25 MG, UNK
  2. AROMASIN [Suspect]
     Active Substance: EXEMESTANE
     Dosage: 25 MG, UNK
  3. AROMASIN [Suspect]
     Active Substance: EXEMESTANE
     Dosage: 25 MG, UNK

REACTIONS (7)
  - Anxiety [Unknown]
  - Nervousness [Unknown]
  - Product container seal issue [Unknown]
  - Product packaging quantity issue [Unknown]
  - Drug dispensing error [Unknown]
  - Malaise [Unknown]
  - Emotional disorder [Unknown]
